FAERS Safety Report 6596820-8 (Version None)
Quarter: 2010Q1

REPORT INFORMATION
  Report Type: 
  Country: None (occurrence: None)
  Receive Date: 20100219
  Receipt Date: 20100219
  Transmission Date: 20100710
  Serious: No
  Sender: FDA-Public Use
  Company Number: None

PATIENT
  Age: 32 Year
  Sex: Male
  Weight: 88.4514 kg

DRUGS (1)
  1. RITE AID MUCUS RELIEF SINUS 400MG GUAIFENESIN/10MG RITE AID CORPORATIO [Suspect]
     Indication: SINUS CONGESTION
     Dosage: 1 TABLET Q4HRS PO
     Route: 048
     Dates: start: 20100201, end: 20100217

REACTIONS (1)
  - VISION BLURRED [None]
